FAERS Safety Report 9827917 (Version 1)
Quarter: 2013Q4

REPORT INFORMATION
  Report Type: Spontaneous
  Country: US (occurrence: None)
  Receive Date: 20131223
  Receipt Date: 20131223
  Transmission Date: 20140711
  Serious: Yes (Other)
  Sender: FDA-Public Use
  Company Number: 218283LEO

PATIENT
  Age: 66 Year
  Sex: Male

DRUGS (5)
  1. PICATO [Suspect]
     Indication: BASAL CELL CARCINOMA
  2. COUMADIN (WARFARIN SODIUM) [Concomitant]
  3. ASPIRIN (ACETYLSALICYLIC ACID) [Concomitant]
  4. SOTOLOL (SOTALOL) [Concomitant]
  5. PROPRANOLOL (PROPANOLOL) [Concomitant]

REACTIONS (4)
  - Application site burn [None]
  - Application site erythema [None]
  - Application site exfoliation [None]
  - Off label use [None]
